FAERS Safety Report 13025216 (Version 1)
Quarter: 2016Q4

REPORT INFORMATION
  Report Type: Report from Study
  Country: GB (occurrence: GB)
  Receive Date: 20161214
  Receipt Date: 20161214
  Transmission Date: 20170207
  Serious: Yes (Other)
  Sender: FDA-Public Use
  Company Number: GB-ROCHE-1864581

PATIENT

DRUGS (3)
  1. PACLITAXEL. [Suspect]
     Active Substance: PACLITAXEL
     Indication: NEOPLASM
     Dosage: ON DAYS 1, 8 AND 15 OF 28 DAY CYCLE
     Route: 042
  2. BEVACIZUMAB [Suspect]
     Active Substance: BEVACIZUMAB
     Indication: NEOPLASM
     Route: 042
  3. AFATINIB [Suspect]
     Active Substance: AFATINIB
     Indication: NEOPLASM
     Dosage: BEGINNING ON DAY 2 OF CYCLE 1
     Route: 048

REACTIONS (8)
  - Fatigue [Unknown]
  - Vomiting [Unknown]
  - Dysphonia [Unknown]
  - Paronychia [Unknown]
  - Dehydration [Unknown]
  - Anaemia [Unknown]
  - Diarrhoea [Unknown]
  - Mucosal inflammation [Unknown]
